FAERS Safety Report 4619702-7 (Version None)
Quarter: 2005Q1

REPORT INFORMATION
  Report Type: 
  Country: None (occurrence: None)
  Receive Date: 20050317
  Receipt Date: 20050317
  Transmission Date: 20050727
  Serious: Yes (Hospitalization)
  Sender: FDA-Public Use
  Company Number: None

PATIENT
  Age: 59 Year
  Sex: Male

DRUGS (16)
  1. DILTIAZEM HCL [Suspect]
     Indication: HYPERTENSION
     Dosage: 360 MG PO QD
     Route: 048
     Dates: start: 20040406, end: 20041124
  2. ATENOLOL [Suspect]
     Indication: HYPERTENSION
     Dosage: 25 MG PO QD
     Route: 048
     Dates: start: 20041101, end: 20041124
  3. ASPIRIN [Concomitant]
  4. AMITRIPTYLINE [Concomitant]
  5. BACLOFEN [Concomitant]
  6. FOLIC ACID [Concomitant]
  7. GABAPENTIN [Concomitant]
  8. HYDROCHLOROTHIAZIDE [Concomitant]
  9. HYDROCORTISONE CREAM [Concomitant]
  10. METHOCARBAMOL [Concomitant]
  11. MULTI-VITAMIN [Concomitant]
  12. PIROXICAM [Concomitant]
  13. SERTRALINE HCL [Concomitant]
  14. PREDNISONE [Concomitant]
  15. OMEPRAZOLE [Concomitant]
  16. LIDOCAINE [Concomitant]

REACTIONS (4)
  - BRADYCARDIA [None]
  - CONTUSION [None]
  - FALL [None]
  - HYPOTENSION [None]
